FAERS Safety Report 5015624-0 (Version None)
Quarter: 2006Q2

REPORT INFORMATION
  Report Type: 
  Country: None (occurrence: None)
  Receive Date: 20060601
  Receipt Date: 20060414
  Transmission Date: 20061013
  Serious: Yes (Disabling)
  Sender: FDA-Public Use
  Company Number: CN-SANOFI-SYNTHELABO-A01200602944

PATIENT
  Age: 67 Year
  Sex: Male

DRUGS (4)
  1. CALCIUM FOLINATE [Concomitant]
     Route: 042
     Dates: start: 20060201, end: 20060201
  2. ELOXATIN [Suspect]
     Route: 042
     Dates: start: 20060213, end: 20060213
  3. LOHEXOL [Concomitant]
     Dosage: UNK
     Route: 042
     Dates: start: 20060213, end: 20060213
  4. FLUOROURACIL [Suspect]
     Route: 042
     Dates: start: 20060201, end: 20060201

REACTIONS (6)
  - DYSKINESIA [None]
  - FALL [None]
  - MONOPARESIS [None]
  - MOTOR DYSFUNCTION [None]
  - NEUROPATHY [None]
  - PAIN IN EXTREMITY [None]
